FAERS Safety Report 12712797 (Version 2)
Quarter: 2017Q2

REPORT INFORMATION
  Report Type: Report from Study
  Country: PH (occurrence: PH)
  Receive Date: 20160902
  Receipt Date: 20170516
  Transmission Date: 20170830
  Serious: Yes (Other)
  Sender: FDA-Public Use
  Company Number: PH-ALEXION PHARMACEUTICALS INC.-A201606435

PATIENT
  Age: 44 Year
  Sex: Male
  Weight: 78.6 kg

DRUGS (5)
  1. SOLIRIS [Suspect]
     Active Substance: ECULIZUMAB
     Dosage: 900 MG, Q2W
     Route: 042
  2. FERROUS SULFATE. [Concomitant]
     Active Substance: FERROUS SULFATE
     Indication: ANAEMIA
     Dosage: ONCE A DAY
     Route: 048
     Dates: start: 20151220, end: 20161215
  3. COUMADIN [Concomitant]
     Active Substance: WARFARIN SODIUM
     Indication: VENA CAVA THROMBOSIS
     Dosage: 2.5 MG, QD
     Route: 048
     Dates: start: 20151201, end: 20170320
  4. SOLIRIS [Suspect]
     Active Substance: ECULIZUMAB
     Indication: PAROXYSMAL NOCTURNAL HAEMOGLOBINURIA
     Dosage: 600 MG, UNK
     Route: 042
     Dates: start: 20151125
  5. DANAZOL. [Concomitant]
     Active Substance: DANAZOL
     Indication: PRODUCT USED FOR UNKNOWN INDICATION
     Dosage: 200 MG, ONCE DAILY
     Route: 048
     Dates: start: 201607

REACTIONS (6)
  - Platelet count decreased [Unknown]
  - Blood lactate dehydrogenase increased [Unknown]
  - Anaemia [Unknown]
  - Reticulocyte count increased [Unknown]
  - Haematocrit decreased [Unknown]
  - Renal impairment [Unknown]

NARRATIVE: CASE EVENT DATE: 20160817
